FAERS Safety Report 5536030-6 (Version None)
Quarter: 2007Q4

REPORT INFORMATION
  Report Type: 
  Country: None (occurrence: None)
  Receive Date: 20071204
  Receipt Date: 20071119
  Transmission Date: 20080405
  Serious: Yes (Hospitalization)
  Sender: FDA-Public Use
  Company Number: 2007US002866

PATIENT
  Age: 42 Year
  Sex: Male

DRUGS (19)
  1. PROGRAF [Suspect]
     Indication: RENAL TRANSPLANT
     Dates: end: 20071008
  2. PROCRIT [Suspect]
     Indication: NEPHROGENIC ANAEMIA
     Dosage: 20000 IU, 3XWEEKLY, SUBCUTANEOUS
     Route: 058
     Dates: start: 20060101
  3. GANCICLOVIR [Suspect]
     Indication: CYTOMEGALOVIRUS INFECTION
  4. DAPSONE [Suspect]
     Indication: ANTIBIOTIC PROPHYLAXIS
  5. MYCOPHENOLATE MOFETIL [Suspect]
     Indication: RENAL TRANSPLANT
     Dates: end: 20071008
  6. LANTUS [Concomitant]
  7. PHOSLO [Concomitant]
  8. NORVASC [Concomitant]
  9. PROTONIX (PANTOPRAZOLO SODIUM) [Concomitant]
  10. CLONIDINE (CLONIDINDE) [Concomitant]
  11. METOPROLOL TARTRATE [Concomitant]
  12. FERROUS SULFATE TAB [Concomitant]
  13. AMBIEN [Concomitant]
  14. NOVOLIN (INSULIN HUMAN INJECTION, ISOPHANE, INSULIN HUMAN) [Concomitant]
  15. NEPHRO-VITE RX (ASCORBIC ACID, VITAMIN B NOS, FOLIC ACID) [Concomitant]
  16. ERGOCALCIFEROL (ERGOCALCIFEROL) [Concomitant]
  17. CIPRO [Concomitant]
  18. G-CSF (GRANULOCYTE STIMULATION FACTOR) [Concomitant]
  19. FOLIC ACID [Concomitant]

REACTIONS (14)
  - ANAEMIA [None]
  - APLASIA PURE RED CELL [None]
  - BK VIRUS INFECTION [None]
  - BONE MARROW FAILURE [None]
  - CYTOMEGALOVIRUS TEST POSITIVE [None]
  - DIVERTICULUM [None]
  - HAEMODIALYSIS [None]
  - HERNIA PAIN [None]
  - KIDNEY TRANSPLANT REJECTION [None]
  - NEPHROPATHY [None]
  - NEUTROPENIA [None]
  - PERICARDIAL EFFUSION [None]
  - POSTOPERATIVE HERNIA [None]
  - WHITE BLOOD CELL COUNT DECREASED [None]
